FAERS Safety Report 6105886-0 (Version None)
Quarter: 2009Q1

REPORT INFORMATION
  Report Type: 
  Country: None (occurrence: None)
  Receive Date: 20090306
  Receipt Date: 20090224
  Transmission Date: 20090719
  Serious: Yes (Death, Other)
  Sender: FDA-Public Use
  Company Number: US-BAXTER-2009BH000570

PATIENT
  Age: 76 Year
  Sex: Female
  Weight: 48 kg

DRUGS (20)
  1. HEPARIN SODIUM INJECTION [Suspect]
     Indication: MYOCARDIAL INFARCTION
     Route: 042
     Dates: start: 20071110, end: 20071110
  2. HEPARIN SODIUM INJECTION [Suspect]
     Indication: ARRHYTHMIA PROPHYLAXIS
     Route: 042
     Dates: start: 20071110, end: 20071110
  3. HEPARIN SODIUM 5,000 UNITS IN DEXTROSE 5% [Suspect]
     Indication: MYOCARDIAL INFARCTION
     Route: 041
     Dates: start: 20071110, end: 20071111
  4. HEPARIN SODIUM 5,000 UNITS IN DEXTROSE 5% [Suspect]
     Indication: ARRHYTHMIA PROPHYLAXIS
     Route: 041
     Dates: start: 20071110, end: 20071111
  5. HEPARIN SODIUM 5,000 UNITS IN DEXTROSE 5% [Suspect]
     Route: 041
     Dates: start: 20071111, end: 20071111
  6. HEPARIN SODIUM 5,000 UNITS IN DEXTROSE 5% [Suspect]
     Route: 041
     Dates: start: 20071111, end: 20071111
  7. SMZ-TMP DS [Concomitant]
     Indication: DRUG USE FOR UNKNOWN INDICATION
     Route: 065
  8. CAPTOPRIL [Concomitant]
     Indication: BLOOD PRESSURE
     Route: 065
  9. XOPENEX [Concomitant]
     Indication: RESPIRATORY DISORDER
     Route: 055
  10. ADVAIR HFA [Concomitant]
     Indication: RESPIRATORY DISORDER
     Route: 055
  11. SPIRIVA [Concomitant]
     Indication: RESPIRATORY DISORDER
     Route: 065
  12. MAXZIDE [Concomitant]
     Indication: DRUG USE FOR UNKNOWN INDICATION
     Route: 065
  13. ATIVAN [Concomitant]
     Indication: DRUG USE FOR UNKNOWN INDICATION
     Route: 065
  14. ZOCOR [Concomitant]
     Indication: BLOOD CHOLESTEROL
     Route: 065
  15. PREDNISONE [Concomitant]
     Indication: DRUG USE FOR UNKNOWN INDICATION
     Route: 048
  16. PREDNISONE [Concomitant]
     Route: 048
  17. PREDNISONE [Concomitant]
     Route: 048
  18. PREDNISONE [Concomitant]
     Route: 048
  19. AVELOX [Concomitant]
     Indication: ANTIBIOTIC THERAPY
     Route: 065
  20. LORAZEPAM [Concomitant]
     Indication: NERVOUSNESS
     Route: 065

REACTIONS (17)
  - ACUTE RESPIRATORY FAILURE [None]
  - CANDIDIASIS [None]
  - CHRONIC LYMPHOCYTIC LEUKAEMIA [None]
  - CORONARY ARTERY DISEASE [None]
  - DIARRHOEA [None]
  - HYPERGLYCAEMIA [None]
  - HYPOGAMMAGLOBULINAEMIA [None]
  - HYPOTENSION [None]
  - HYPOXIA [None]
  - ISCHAEMIC HEPATITIS [None]
  - LIVER DISORDER [None]
  - MELAENA [None]
  - PNEUMONIA HERPES VIRAL [None]
  - QUADRIPARESIS [None]
  - RENAL FAILURE ACUTE [None]
  - SEPTIC SHOCK [None]
  - THROMBOCYTOPENIA [None]
